FAERS Safety Report 5720032-0 (Version None)
Quarter: 2008Q2

REPORT INFORMATION
  Report Type: 
  Country: None (occurrence: None)
  Receive Date: 20080423
  Receipt Date: 20070410
  Transmission Date: 20081010
  Serious: Yes (Life-Threatening, Hospitalization)
  Sender: FDA-Public Use
  Company Number: 231978

PATIENT
  Age: 54 Year
  Sex: Female

DRUGS (11)
  1. AVASTIN [Suspect]
     Indication: COLORECTAL CANCER METASTATIC
     Dosage: 343 MG, Q2W, INTRAVENOUS
     Route: 042
     Dates: start: 20060701, end: 20061025
  2. FLUOROURACIL [Concomitant]
  3. LEUCOVORIN CALCIUM [Concomitant]
  4. OXALIPLATIN [Concomitant]
  5. NSAIDS (NON-STERIODAL ANTI-INFLAMMATORY DRUG NOS) [Concomitant]
  6. ARANSEP (DARBEPOETIN ALFA) [Concomitant]
  7. COMPAZINE [Concomitant]
  8. COUMADIN [Concomitant]
  9. NEXIUM [Concomitant]
  10. COLACE (DOCUSATE SODIUM) [Concomitant]
  11. NEULASTA [Concomitant]

REACTIONS (3)
  - IMPAIRED HEALING [None]
  - RECTAL PERFORATION [None]
  - SEPSIS [None]
